FAERS Safety Report 7446308-7 (Version None)
Quarter: 2011Q2

REPORT INFORMATION
  Report Type: 
  Country: None (occurrence: None)
  Receive Date: 20110429
  Receipt Date: 20100521
  Transmission Date: 20111010
  Serious: No
  Sender: FDA-Public Use
  Company Number: US-ASTRAZENECA-2010SE23618

PATIENT
  Age: 74 Year
  Sex: Male
  Weight: 56.8 kg

DRUGS (13)
  1. ASMANEX TWISTHALER [Concomitant]
  2. XANAX [Concomitant]
  3. IPRATROPIUM BROMIDE [Suspect]
     Indication: CHRONIC OBSTRUCTIVE PULMONARY DISEASE
     Dates: start: 20100301
  4. DILTIAZEM [Concomitant]
  5. AMITIZIA [Concomitant]
  6. FLOMAX [Concomitant]
  7. DONNATAL [Concomitant]
  8. AVODART [Concomitant]
  9. NEXIUM [Suspect]
     Indication: GASTROOESOPHAGEAL REFLUX DISEASE
     Route: 048
     Dates: start: 20100301
  10. XOPENEX [Suspect]
     Indication: CHRONIC OBSTRUCTIVE PULMONARY DISEASE
     Dates: start: 20100301
  11. CRESTOR [Concomitant]
  12. CLARINEX [Concomitant]
  13. ACIPHEX [Concomitant]

REACTIONS (9)
  - DECREASED APPETITE [None]
  - DRUG INEFFECTIVE [None]
  - ABDOMINAL PAIN [None]
  - GASTROOESOPHAGEAL REFLUX DISEASE [None]
  - HEART RATE INCREASED [None]
  - ABDOMINAL DISTENSION [None]
  - DYSPNOEA [None]
  - FAECES DISCOLOURED [None]
  - GASTRIC HAEMORRHAGE [None]
